FAERS Safety Report 22099419 (Version 1)
Quarter: 2023Q1

REPORT INFORMATION
  Report Type: Spontaneous
  Country: US (occurrence: US)
  Receive Date: 20230315
  Receipt Date: 20230315
  Transmission Date: 20230417
  Serious: No
  Sender: FDA-Public Use
  Company Number: US-Calliditas-2023CAL00242

PATIENT
  Age: 52 Year
  Sex: Female

DRUGS (1)
  1. TARPEYO [Suspect]
     Active Substance: BUDESONIDE
     Indication: Haematuria
     Dosage: 16 MG (4MG CAPSULES) ONCE DAILY
     Route: 048
     Dates: start: 20230228

REACTIONS (7)
  - Headache [Unknown]
  - Increased appetite [Unknown]
  - Hot flush [Unknown]
  - Dizziness [Unknown]
  - Dry mouth [Unknown]
  - Alopecia [Unknown]
  - Off label use [Unknown]
